FAERS Safety Report 6934907-8 (Version None)
Quarter: 2010Q3

REPORT INFORMATION
  Report Type: 
  Country: None (occurrence: None)
  Receive Date: 20100821
  Receipt Date: 20100809
  Transmission Date: 20110219
  Serious: Yes (Hospitalization)
  Sender: FDA-Public Use
  Company Number: GXKR2010TR08889

PATIENT
  Age: 24 Year
  Sex: Male

DRUGS (1)
  1. DEXAMETHASONE (NGX) [Suspect]
     Route: 030

REACTIONS (2)
  - ACNE PUSTULAR [None]
  - LUPUS MILIARIS DISSEMINATUS FACIEI [None]
